FAERS Safety Report 22205918 (Version 1)
Quarter: 2023Q2

REPORT INFORMATION
  Report Type: Spontaneous
  Country: HR (occurrence: HR)
  Receive Date: 20230413
  Receipt Date: 20230413
  Transmission Date: 20230722
  Serious: Yes (Other)
  Sender: FDA-Public Use
  Company Number: HR-BAYER-2022A069109

PATIENT
  Age: 35 Year
  Sex: Female

DRUGS (2)
  1. RIVAROXABAN [Suspect]
     Active Substance: RIVAROXABAN
     Indication: Product used for unknown indication
     Dosage: 20 MG, QD
     Route: 048
  2. MESALAMINE [Concomitant]
     Active Substance: MESALAMINE
     Dosage: 4 G

REACTIONS (1)
  - Haemangioma of liver [Unknown]
